FAERS Safety Report 7423449-1 (Version None)
Quarter: 2011Q2

REPORT INFORMATION
  Report Type: 
  Country: None (occurrence: None)
  Receive Date: 20110419
  Receipt Date: 20110323
  Transmission Date: 20111010
  Serious: Yes (Other)
  Sender: FDA-Public Use
  Company Number: JP-SANOFI-AVENTIS-2011SA008123

PATIENT
  Age: 71 Year
  Sex: Male

DRUGS (7)
  1. ATELEC [Concomitant]
     Route: 048
  2. ZOLPIDEM [Suspect]
     Route: 048
     Dates: start: 20110105, end: 20110121
  3. ROZEREM [Interacting]
     Route: 048
     Dates: start: 20110105, end: 20110121
  4. PERINDOPRIL ERBUMINE [Concomitant]
     Route: 048
  5. MAGNESIUM OXIDE [Concomitant]
     Route: 048
  6. ASPIRIN [Concomitant]
     Route: 048
  7. YOKUKAN-SAN [Concomitant]
     Route: 048

REACTIONS (2)
  - DRUG INTERACTION [None]
  - HYPOTHERMIA [None]
